FAERS Safety Report 8366189-7 (Version None)
Quarter: 2012Q2

REPORT INFORMATION
  Report Type: 
  Country: None (occurrence: None)
  Receive Date: 20120517
  Receipt Date: 20120511
  Transmission Date: 20120825
  Serious: Yes (Hospitalization)
  Sender: FDA-Public Use
  Company Number: US-BAYER-2011-007378

PATIENT
  Age: 36 Year
  Sex: Female
  Weight: 57.596 kg

DRUGS (8)
  1. DOXYCYCLINE [Concomitant]
     Indication: PELVIC INFECTION
     Dosage: 100 MG, UNK
     Dates: start: 20061214, end: 20061219
  2. TORADOL [Concomitant]
     Indication: PAIN
     Dosage: 30 MG, UNK
     Route: 042
     Dates: start: 20061214
  3. ROCEPHIN [Concomitant]
     Indication: PELVIC INFECTION
     Dosage: 250 MG, UNK
     Route: 030
     Dates: start: 20061214
  4. HYDROCODONE BITARTRATE [Concomitant]
     Indication: PAIN
     Dosage: 5MG/500MG
     Route: 048
     Dates: start: 20061214, end: 20061219
  5. VICODIN [Concomitant]
  6. YAZ [Suspect]
     Indication: PRODUCT USED FOR UNKNOWN INDICATION
     Dosage: UNK
     Dates: start: 20060701, end: 20061201
  7. MIGRIN-A [Concomitant]
     Indication: MIGRAINE
     Dosage: 2 CAPS
     Route: 048
     Dates: start: 20061214, end: 20061219
  8. IBUPROFEN (ADVIL) [Concomitant]
     Dosage: UNK
     Route: 048
     Dates: start: 20061219

REACTIONS (3)
  - INJURY [None]
  - PAIN [None]
  - DEEP VEIN THROMBOSIS [None]
